FAERS Safety Report 21423247 (Version 2)
Quarter: 2022Q4

REPORT INFORMATION
  Report Type: Spontaneous
  Country: US (occurrence: US)
  Receive Date: 20221007
  Receipt Date: 20221017
  Transmission Date: 20230112
  Serious: No
  Sender: FDA-Public Use
  Company Number: US-AMGEN-USASP2022170232

PATIENT
  Age: 70 Year
  Sex: Female
  Weight: 61.678 kg

DRUGS (3)
  1. NEULASTA [Suspect]
     Active Substance: PEGFILGRASTIM
     Indication: Product used for unknown indication
     Dosage: UNK, 24 HOUR POST THERAPY
     Route: 058
  2. NEULASTA [Suspect]
     Active Substance: PEGFILGRASTIM
     Dosage: UNK, 24 HOUR POST THERAPY
     Route: 058
  3. NEULASTA [Suspect]
     Active Substance: PEGFILGRASTIM
     Dosage: UNK, 24 HOUR POST THERAPY
     Route: 058

REACTIONS (1)
  - Unintentional medical device removal [Recovered/Resolved]

NARRATIVE: CASE EVENT DATE: 20220929
